FAERS Safety Report 25381340 (Version 1)
Quarter: 2025Q2

REPORT INFORMATION
  Report Type: Spontaneous
  Country: US (occurrence: US)
  Receive Date: 20250530
  Receipt Date: 20250530
  Transmission Date: 20250717
  Serious: No
  Sender: CIPLA
  Company Number: US-CIPLA LTD.-2024US11424

PATIENT

DRUGS (17)
  1. ALBUTEROL [Suspect]
     Active Substance: ALBUTEROL
     Indication: Chronic obstructive pulmonary disease
  2. ALBUTEROL [Suspect]
     Active Substance: ALBUTEROL
     Indication: Wheezing
  3. METOPROLOL [Concomitant]
     Active Substance: METOPROLOL
     Indication: Hypertension
     Dosage: 100 MILLIGRAM, QD (2 TABLETS PER DAY)(3 YEARS AGO)
     Route: 065
     Dates: start: 2021
  4. HYDRALAZINE [Concomitant]
     Active Substance: HYDRALAZINE HYDROCHLORIDE
     Indication: Hypertension
     Dosage: 75 MILLIGRAM, TID (3 TABLETS 3 TIMES A DAY), 3 YEARS AGO
     Route: 065
     Dates: start: 2021
  5. DEPAKOTE [Concomitant]
     Active Substance: DIVALPROEX SODIUM
     Indication: Seizure
     Dosage: 500 MILLIGRAM, BID (2 TABLETS PER DAY)3 YEARS AGO
     Route: 065
     Dates: start: 2021
  6. ASCORBIC ACID\BIOTIN\CALCIUM PANTOTHENATE\CYANOCOBALAMIN\FOLIC ACID\NI [Concomitant]
     Active Substance: ASCORBIC ACID\BIOTIN\CALCIUM PANTOTHENATE\CYANOCOBALAMIN\FOLIC ACID\NIACINAMIDE\PYRIDOXINE HYDROCHLO
     Indication: Dialysis
     Dosage: 1 DOSAGE FORM, QD (1 TABLET PER DAY (THERE WAS NO STRENGTH, IT WAS A VITAMIN))3 YEARS AGO
     Route: 065
     Dates: start: 2021
  7. FOLIC ACID [Concomitant]
     Active Substance: FOLIC ACID
     Indication: Blood folate decreased
     Dosage: 1 MILLIGRAM, QD (3 YEARS AGO)
     Route: 065
     Dates: start: 2021
  8. LIPITOR [Concomitant]
     Active Substance: ATORVASTATIN CALCIUM
     Indication: Blood cholesterol increased
     Dosage: 10 MILLIGRAM, QD (1 TABLET PER DAY), 3 YEARS AGO
     Route: 065
     Dates: start: 2021
  9. OMEPRAZOLE [Concomitant]
     Active Substance: OMEPRAZOLE
     Indication: Gastrointestinal disorder
     Dosage: 40 MILLIGRAM, QD (1 TABLET ONCE A DAY)(3 YEARS AGO)
     Route: 065
     Dates: start: 2021
  10. CYANOCOBALAMIN [Concomitant]
     Active Substance: CYANOCOBALAMIN
     Indication: Anaemia
     Route: 048
     Dates: start: 2021
  11. HYDROXYZINE [Concomitant]
     Active Substance: HYDROXYZINE HYDROCHLORIDE
     Indication: Nasal congestion
     Dosage: 25 MILLIGRAM, TID (PATIENT COULD TAKE 3 TABLET 3 TIMES A DAY BUT SHE WAS ONLY TAKING 1 TABLET 3 TIME
     Route: 065
     Dates: start: 2021
  12. THIAMINE [Concomitant]
     Active Substance: THIAMINE
     Indication: Vitamin B1 decreased
     Dosage: 100 MICROGRAM, QD (1 TABLET A DAY)3 YEARS AGO
     Route: 065
     Dates: start: 2021
  13. CALCIUM [Concomitant]
     Active Substance: CALCIUM
     Indication: Blood calcium decreased
     Dosage: 600 MILLIGRAM, QD (ONCE A DAY) (3 YEARS AGO)
     Route: 065
     Dates: start: 2021
  14. FIORINAL [Concomitant]
     Active Substance: ASPIRIN\BUTALBITAL\CAFFEINE
     Indication: Migraine
     Route: 065
     Dates: start: 2021
  15. VITAMINS [Concomitant]
     Active Substance: VITAMINS
     Indication: Product used for unknown indication
     Route: 065
     Dates: start: 2021
  16. INCRUSE ELLIPTA [Concomitant]
     Active Substance: UMECLIDINIUM BROMIDE
     Indication: Chronic obstructive pulmonary disease
     Dosage: 1 PUFF PER DAY, QD
     Route: 065
  17. FLUTICASONE PROPIONATE [Concomitant]
     Active Substance: FLUTICASONE PROPIONATE
     Indication: Chronic obstructive pulmonary disease
     Route: 065

REACTIONS (5)
  - Nasopharyngitis [Not Recovered/Not Resolved]
  - Drug ineffective [Unknown]
  - Wrong technique in product usage process [Unknown]
  - Drug dose omission by device [Unknown]
  - Device delivery system issue [Unknown]

NARRATIVE: CASE EVENT DATE: 20240101
